FAERS Safety Report 9479131 (Version 2)
Quarter: 2013Q3

REPORT INFORMATION
  Report Type: Report from Study
  Country: NO (occurrence: NO)
  Receive Date: 20130827
  Receipt Date: 20130827
  Transmission Date: 20140515
  Serious: Yes (Hospitalization, Other)
  Sender: FDA-Public Use
  Company Number: NO-BRISTOL-MYERS SQUIBB COMPANY-14826408

PATIENT
  Age: 57 Year
  Sex: Male

DRUGS (4)
  1. WARFARIN SODIUM [Suspect]
     Indication: EMBOLISM
     Dosage: INTERRUPTED 14OCT TO 19OCT; RESTARTED 20OCT, DC^D 210CT?RESTARTED:21OCT09
     Route: 048
     Dates: start: 20091008, end: 20091021
  2. ENOXAPARIN [Suspect]
     Indication: EMBOLISM
     Dosage: INTERRUPTED 14OCT TO 19OCT; RESTARTED 20OCT, DC^D 210CT?RESTARTED:21OCT09
     Route: 058
     Dates: start: 20091008, end: 20091021
  3. PLACEBO [Suspect]
     Indication: EMBOLISM
     Dosage: INTERRUPTED 14OCT TO 19OCT; RESTARTED 20OCT, DC^D 210CT
     Dates: start: 20091008, end: 20091021
  4. ENOXAPARIN [Concomitant]
     Dosage: RESTARTED:21OCT09
     Dates: start: 20091014, end: 20091019

REACTIONS (2)
  - Hepatitis [Recovered/Resolved]
  - Pulmonary embolism [Recovered/Resolved]
